FAERS Safety Report 18153536 (Version 2)
Quarter: 2020Q3

REPORT INFORMATION
  Report Type: Report from Study
  Country: US (occurrence: US)
  Receive Date: 20200816
  Receipt Date: 20200923
  Transmission Date: 20201103
  Serious: Yes (Other)
  Sender: FDA-Public Use
  Company Number: NVSC2020US219674

PATIENT

DRUGS (1)
  1. COSENTYX [Suspect]
     Active Substance: SECUKINUMAB
     Indication: PSORIASIS
     Dosage: 300 MG, QMO
     Route: 058

REACTIONS (8)
  - Eye disorder [Unknown]
  - Colitis ulcerative [Unknown]
  - Rhinitis [Unknown]
  - Abdominal discomfort [Unknown]
  - Furuncle [Unknown]
  - Diverticulitis [Unknown]
  - Abdominal pain [Unknown]
  - Nail infection [Unknown]
